FAERS Safety Report 4741727-1 (Version None)
Quarter: 2005Q3

REPORT INFORMATION
  Report Type: 
  Country: None (occurrence: None)
  Receive Date: 20050810
  Receipt Date: 20040901
  Transmission Date: 20060218
  Serious: Yes (Hospitalization)
  Sender: FDA-Public Use
  Company Number: FR-MERCK-0409FRA00001

PATIENT
  Age: 80 Year
  Sex: Female
  Weight: 65 kg

DRUGS (17)
  1. VIOXX [Suspect]
     Indication: OSTEOARTHRITIS
     Route: 048
     Dates: start: 20040611, end: 20040706
  2. PERINDOPRIL ERBUMINE [Suspect]
     Route: 048
  3. DIGOXIN [Suspect]
     Indication: ATRIAL FIBRILLATION
     Route: 048
  4. DIGOXIN [Suspect]
     Indication: ATRIAL FLUTTER
     Route: 048
  5. DILTIAZEM HYDROCHLORIDE [Suspect]
     Indication: ATRIAL FIBRILLATION
     Route: 048
     Dates: end: 20040706
  6. DILTIAZEM HYDROCHLORIDE [Suspect]
     Indication: ATRIAL FLUTTER
     Route: 048
     Dates: end: 20040706
  7. FLUINDIONE [Concomitant]
     Indication: ATRIAL FIBRILLATION
     Route: 048
     Dates: end: 20040706
  8. FLUINDIONE [Concomitant]
     Indication: ATRIAL FLUTTER
     Route: 048
     Dates: end: 20040706
  9. LEVOTHYROXINE SODIUM [Concomitant]
     Indication: HYPOTHYROIDISM
     Route: 048
  10. AMLODIPINE BESYLATE [Concomitant]
     Route: 048
  11. FUROSEMIDE [Concomitant]
     Route: 048
  12. POTASSIUM CHLORIDE [Concomitant]
     Route: 048
  13. ALLOPURINOL [Concomitant]
     Route: 048
  14. OXERUTINS [Concomitant]
     Route: 048
  15. ATORVASTATIN CALCIUM [Concomitant]
     Indication: HYPERCHOLESTEROLAEMIA
     Route: 048
  16. PANTOPRAZOLE [Concomitant]
     Route: 048
  17. CALCIUM CARBONATE AND CHOLECALCIFEROL [Concomitant]
     Route: 048

REACTIONS (4)
  - BRADYCARDIA [None]
  - CARDIOACTIVE DRUG LEVEL INCREASED [None]
  - DRUG INTERACTION [None]
  - RENAL FAILURE [None]
